FAERS Safety Report 25531381 (Version 1)
Quarter: 2025Q3

REPORT INFORMATION
  Report Type: Spontaneous
  Country: KR (occurrence: KR)
  Receive Date: 20250708
  Receipt Date: 20250708
  Transmission Date: 20251020
  Serious: Yes (Death)
  Sender: MERCK SHARP & DOHME LLC
  Company Number: KR-009507513-2304384

PATIENT
  Age: 69 Year
  Sex: Female

DRUGS (3)
  1. PEMBROLIZUMAB [Suspect]
     Active Substance: PEMBROLIZUMAB
     Indication: Clear cell endometrial carcinoma
     Dates: start: 20240219, end: 20240802
  2. PACLITAXEL [Suspect]
     Active Substance: PACLITAXEL
     Indication: Clear cell endometrial carcinoma
     Dates: start: 20240219, end: 20240802
  3. CARBOPLATIN [Suspect]
     Active Substance: CARBOPLATIN
     Indication: Clear cell endometrial carcinoma
     Dates: start: 20240219, end: 20240802

REACTIONS (2)
  - Malignant neoplasm progression [Fatal]
  - Inappropriate schedule of product administration [Unknown]

NARRATIVE: CASE EVENT DATE: 20240101
